FAERS Safety Report 22717083 (Version 4)
Quarter: 2024Q3

REPORT INFORMATION
  Report Type: Spontaneous
  Country: US (occurrence: US)
  Receive Date: 20230718
  Receipt Date: 20240827
  Transmission Date: 20241016
  Serious: Yes (Hospitalization, Other)
  Sender: PFIZER
  Company Number: US-PFIZER INC-202300250035

PATIENT
  Age: 16 Year
  Sex: Male
  Weight: 57.9 kg

DRUGS (1)
  1. OXBRYTA [Suspect]
     Active Substance: VOXELOTOR
     Indication: Sickle cell anaemia
     Dosage: 500MG/3 TABLETS ONCE DAILY
     Route: 048
     Dates: start: 202003

REACTIONS (5)
  - Tonsillitis [Recovered/Resolved]
  - Sickle cell anaemia with crisis [Unknown]
  - Nasopharyngitis [Unknown]
  - Pharyngitis [Unknown]
  - Blood test abnormal [Unknown]

NARRATIVE: CASE EVENT DATE: 20240419
